FAERS Safety Report 7551646-3 (Version None)
Quarter: 2011Q2

REPORT INFORMATION
  Report Type: 
  Country: None (occurrence: None)
  Receive Date: 20110609
  Receipt Date: 20110524
  Transmission Date: 20111010
  Serious: Yes (Hospitalization, Other)
  Sender: FDA-Public Use
  Company Number: 2011MA006388

PATIENT
  Age: 50 Year
  Sex: Female

DRUGS (4)
  1. PYRAZYNAMIDE [Concomitant]
  2. ISONIAZID [Concomitant]
  3. ETHAMBUTOL [Concomitant]
  4. RIFAMPIN [Suspect]
     Indication: TUBERCULOSIS

REACTIONS (9)
  - ANAEMIA [None]
  - EMPTY SELLA SYNDROME [None]
  - SYNCOPE [None]
  - HYPONATRAEMIA [None]
  - ADRENOCORTICAL INSUFFICIENCY ACUTE [None]
  - HYPOPITUITARISM [None]
  - HYPOTENSION [None]
  - SECONDARY HYPOTHYROIDISM [None]
  - CONFUSIONAL STATE [None]
